FAERS Safety Report 26027860 (Version 1)
Quarter: 2025Q4

REPORT INFORMATION
  Report Type: Report from Study
  Country: US (occurrence: US)
  Receive Date: 20251111
  Receipt Date: 20251111
  Transmission Date: 20260118
  Serious: No
  Sender: ACADIA PHARMACEUTICALS
  Company Number: US-ACADIA PHARMACEUTICALS INC.-ACA-2025-PIM-011906

PATIENT
  Age: 83 Year
  Sex: Male

DRUGS (8)
  1. NUPLAZID [Suspect]
     Active Substance: PIMAVANSERIN TARTRATE
     Indication: Hallucination
     Dosage: 10 MILLIGRAM, QD
     Route: 048
     Dates: start: 20251022
  2. NUPLAZID [Suspect]
     Active Substance: PIMAVANSERIN TARTRATE
     Indication: Parkinson^s disease
  3. NUPLAZID [Suspect]
     Active Substance: PIMAVANSERIN TARTRATE
     Indication: Dementia with Lewy bodies
  4. CARVEDILOL [Concomitant]
     Active Substance: CARVEDILOL
  5. DULOXETINE [Concomitant]
     Active Substance: DULOXETINE
  6. FUROSEMIDE [Concomitant]
     Active Substance: FUROSEMIDE
  7. OMEPRAZOLE [Concomitant]
     Active Substance: OMEPRAZOLE
  8. SEROQUEL [Concomitant]
     Active Substance: QUETIAPINE FUMARATE

REACTIONS (2)
  - Underdose [Not Recovered/Not Resolved]
  - Off label use [Not Recovered/Not Resolved]

NARRATIVE: CASE EVENT DATE: 20251022
